FAERS Safety Report 25196404 (Version 1)
Quarter: 2025Q2

REPORT INFORMATION
  Report Type: Spontaneous
  Country: JP (occurrence: JP)
  Receive Date: 20250415
  Receipt Date: 20250415
  Transmission Date: 20250716
  Serious: Yes (Other)
  Sender: MERCK SHARP AND DOHME
  Company Number: JP-MSD-2407JPN002315J

PATIENT
  Age: 75 Year
  Sex: Female

DRUGS (1)
  1. KEYTRUDA [Suspect]
     Active Substance: PEMBROLIZUMAB
     Indication: Lung squamous cell carcinoma stage IV
     Route: 065
     Dates: start: 20220608

REACTIONS (4)
  - Malignant neoplasm progression [Unknown]
  - Malignant neoplasm progression [Unknown]
  - Neuropathy peripheral [Unknown]
  - Skin disorder [Unknown]
